FAERS Safety Report 7466809-5 (Version None)
Quarter: 2011Q2

REPORT INFORMATION
  Report Type: 
  Country: None (occurrence: None)
  Receive Date: 20110509
  Receipt Date: 20110427
  Transmission Date: 20111010
  Serious: Yes (Hospitalization, Disabling, Other)
  Sender: FDA-Public Use
  Company Number: US-MERCK-1009USA04026

PATIENT
  Age: 55 Year
  Sex: Female

DRUGS (2)
  1. VITAMINS (UNSPECIFIED) [Concomitant]
     Route: 065
  2. FOSAMAX [Suspect]
     Indication: OSTEOPOROSIS
     Route: 048
     Dates: start: 19910101, end: 20060101

REACTIONS (11)
  - FEMUR FRACTURE [None]
  - FALL [None]
  - ADVERSE EVENT [None]
  - ANXIETY [None]
  - DEPRESSION [None]
  - HIP FRACTURE [None]
  - LEUKOPENIA [None]
  - ENDOMETRIAL CANCER [None]
  - FRACTURE NONUNION [None]
  - TOOTH FRACTURE [None]
  - TOOTH EXTRACTION [None]
